FAERS Safety Report 23448135 (Version 2)
Quarter: 2024Q1

REPORT INFORMATION
  Report Type: Spontaneous
  Country: TR (occurrence: TR)
  Receive Date: 20240126
  Receipt Date: 20240206
  Transmission Date: 20240410
  Serious: Yes (Other)
  Sender: FDA-Public Use
  Company Number: TR-009507513-2401TUR013562

PATIENT
  Age: 55 Year
  Sex: Female

DRUGS (1)
  1. KEYTRUDA [Suspect]
     Active Substance: PEMBROLIZUMAB
     Indication: Triple negative breast cancer
     Dosage: UNK

REACTIONS (4)
  - Diabetic ketoacidosis [Unknown]
  - Sjogren^s syndrome [Unknown]
  - Autoimmune hepatitis [Unknown]
  - Autoimmune thyroiditis [Unknown]
